FAERS Safety Report 17817609 (Version 1)
Quarter: 2020Q2

REPORT INFORMATION
  Report Type: Spontaneous
  Country: FR (occurrence: FR)
  Receive Date: 20200522
  Receipt Date: 20200522
  Transmission Date: 20200714
  Serious: Yes (Other)
  Sender: FDA-Public Use
  Company Number: FR-PFIZER INC-2020202184

PATIENT
  Age: 53 Year
  Sex: Male

DRUGS (4)
  1. BLEOMYCINE BELLON [Suspect]
     Active Substance: BLEOMYCIN SULFATE
     Indication: HODGKIN^S DISEASE
     Dosage: 20 MG (PER CURE)
     Route: 041
     Dates: start: 20190702, end: 201912
  2. DETICENE [Suspect]
     Active Substance: DACARBAZINE
     Indication: HODGKIN^S DISEASE
     Dosage: 750 MG (PER CURE)
     Route: 041
     Dates: start: 20190702, end: 201912
  3. ADRIBLASTINE [Suspect]
     Active Substance: DOXORUBICIN
     Indication: HODGKIN^S DISEASE
     Dosage: 50 MG (PER CURE)
     Route: 041
     Dates: start: 20190702, end: 201912
  4. VELBE [Suspect]
     Active Substance: VINBLASTINE SULFATE
     Indication: HODGKIN^S DISEASE
     Dosage: 12 MG (PER CURE)
     Route: 041
     Dates: start: 20190702, end: 201912

REACTIONS (1)
  - Organising pneumonia [Recovered/Resolved]

NARRATIVE: CASE EVENT DATE: 202001
